FAERS Safety Report 6300517-9 (Version None)
Quarter: 2009Q3

REPORT INFORMATION
  Report Type: 
  Country: None (occurrence: None)
  Receive Date: 20090806
  Receipt Date: 20090217
  Transmission Date: 20100115
  Serious: No
  Sender: FDA-Public Use
  Company Number: US-ABBOTT-09P-163-0558135-00

PATIENT
  Sex: Female
  Weight: 104.42 kg

DRUGS (5)
  1. DEPAKOTE ER [Suspect]
     Indication: BIPOLAR DISORDER
     Dates: start: 20070101
  2. SEROQUEL [Concomitant]
     Indication: ANXIETY
  3. EFFEXOR [Concomitant]
     Indication: DRUG USE FOR UNKNOWN INDICATION
  4. PROPRANOLOL [Concomitant]
     Indication: ANXIETY
  5. THYROID TAB [Concomitant]
     Indication: THYROID DISORDER

REACTIONS (1)
  - MEDICATION RESIDUE [None]
